FAERS Safety Report 22250686 (Version 1)
Quarter: 2023Q2

REPORT INFORMATION
  Report Type: Spontaneous
  Country: US (occurrence: None)
  Receive Date: 20230424
  Receipt Date: 20230424
  Transmission Date: 20230721
  Serious: Yes (Life-Threatening, Hospitalization)
  Sender: FDA-Public Use
  Company Number: None

PATIENT
  Age: 18 Year
  Sex: Male
  Weight: 69 kg

DRUGS (1)
  1. SULFAMETHOXAZOLE AND TRIMETHOPRIM [Suspect]
     Active Substance: SULFAMETHOXAZOLE\TRIMETHOPRIM
     Indication: Acne
     Dosage: FREQUENCY : TWICE A DAY;?
     Route: 048
     Dates: start: 20230205, end: 20230301

REACTIONS (11)
  - Pneumonia [None]
  - Pneumothorax [None]
  - Atelectasis [None]
  - Subcutaneous emphysema [None]
  - Pulmonary interstitial emphysema syndrome [None]
  - Pneumomediastinum [None]
  - Platelet count increased [None]
  - Enterococcal infection [None]
  - Vascular device infection [None]
  - Blood culture positive [None]
  - Lung transplant [None]

NARRATIVE: CASE EVENT DATE: 20230227
